FAERS Safety Report 13746171 (Version 1)
Quarter: 2017Q3

REPORT INFORMATION
  Report Type: Spontaneous
  Country: CA (occurrence: CA)
  Receive Date: 20170712
  Receipt Date: 20170712
  Transmission Date: 20171127
  Serious: Yes (Disabling)
  Sender: FDA-Public Use
  Company Number: CA-BAYER-2017-130236

PATIENT
  Age: 53 Year
  Sex: Male
  Weight: 68.93 kg

DRUGS (2)
  1. LEVOTHYROXINE. [Concomitant]
     Active Substance: LEVOTHYROXINE
     Dosage: UNK
  2. CIPRO [Suspect]
     Active Substance: CIPROFLOXACIN HYDROCHLORIDE
     Indication: PROSTATITIS
     Dosage: 1000 MG, QD
     Route: 048
     Dates: start: 20170417, end: 20170423

REACTIONS (4)
  - Dry eye [None]
  - Disability [None]
  - Dry mouth [None]
  - Coccydynia [None]

NARRATIVE: CASE EVENT DATE: 20170417
